FAERS Safety Report 5920935-8 (Version None)
Quarter: 2008Q4

REPORT INFORMATION
  Report Type: 
  Country: None (occurrence: None)
  Receive Date: 20081016
  Receipt Date: 20081006
  Transmission Date: 20090506
  Serious: Yes (Hospitalization)
  Sender: FDA-Public Use
  Company Number: FR-JNJFOC-20081001802

PATIENT
  Age: 77 Year
  Sex: Male

DRUGS (2)
  1. DOXORUBICIN HCL [Suspect]
     Dosage: CYCLE 2
     Route: 042
  2. DOXORUBICIN HCL [Suspect]
     Indication: MYCOSIS FUNGOIDES
     Dosage: CYCLE 1
     Route: 042

REACTIONS (2)
  - SKIN EROSION [None]
  - TOXIC SKIN ERUPTION [None]
